FAERS Safety Report 23764968 (Version 1)
Quarter: 2024Q2

REPORT INFORMATION
  Report Type: Spontaneous
  Country: US (occurrence: US)
  Receive Date: 20240420
  Receipt Date: 20240420
  Transmission Date: 20240715
  Serious: Yes (Hospitalization, Other)
  Sender: FDA-Public Use
  Company Number: US-MLMSERVICE-20240402-4921164-1

PATIENT
  Age: 17 Year
  Sex: Male

DRUGS (6)
  1. OLANZAPINE [Suspect]
     Active Substance: OLANZAPINE
     Indication: Psychotic symptom
     Dosage: 5 MILLIGRAM
     Route: 030
  2. RISPERIDONE [Suspect]
     Active Substance: RISPERIDONE
     Indication: Psychotic disorder
     Dosage: 1 MILLIGRAM, TWO TIMES A DAY
     Route: 065
  3. RISPERIDONE [Suspect]
     Active Substance: RISPERIDONE
     Dosage: 0.5 MILLIGRAM, TWO TIMES A DAY
     Route: 065
  4. RISPERIDONE [Suspect]
     Active Substance: RISPERIDONE
     Dosage: 3 MILLIGRAM, ONCE A DAY (1MG IN THE MORNING AND 2 MG AT BEDTIMES)
     Route: 065
  5. DIPHENHYDRAMINE [Concomitant]
     Active Substance: DIPHENHYDRAMINE
     Indication: Insomnia
     Dosage: 50 MILLIGRAM
     Route: 030
  6. DIPHENHYDRAMINE [Concomitant]
     Active Substance: DIPHENHYDRAMINE
     Indication: Extrapyramidal disorder
     Dosage: 50 MILLIGRAM, ONCE A DAY
     Route: 048

REACTIONS (2)
  - Akathisia [Recovering/Resolving]
  - Catatonia [Recovering/Resolving]
